FAERS Safety Report 23260022 (Version 2)
Quarter: 2023Q4

REPORT INFORMATION
  Report Type: Spontaneous
  Country: IT (occurrence: IT)
  Receive Date: 20231204
  Receipt Date: 20231212
  Transmission Date: 20240110
  Serious: Yes (Life-Threatening, Other)
  Sender: FDA-Public Use
  Company Number: IT-MLMSERVICE-20231123-4683271-1

PATIENT
  Age: 30 Year
  Sex: Male

DRUGS (4)
  1. DOXORUBICIN HYDROCHLORIDE [Suspect]
     Active Substance: DOXORUBICIN HYDROCHLORIDE
     Indication: Hodgkin^s disease lymphocyte depletion type stage III
     Dosage: THIRD-LINE THERAPY, CYCLIC
     Dates: start: 202004, end: 2020
  2. BRENTUXIMAB VEDOTIN [Suspect]
     Active Substance: BRENTUXIMAB VEDOTIN
     Indication: Hodgkin^s disease lymphocyte depletion type stage III
     Dosage: THIRD-LINE THERAPY, CYCLIC
     Dates: start: 2020, end: 2020
  3. DACARBAZINE [Suspect]
     Active Substance: DACARBAZINE
     Indication: Hodgkin^s disease lymphocyte depletion type stage III
     Dosage: THIRD-LINE THERAPY, CYCLIC
     Dates: start: 202004, end: 2020
  4. VINBLASTINE [Suspect]
     Active Substance: VINBLASTINE
     Indication: Hodgkin^s disease lymphocyte depletion type stage III
     Dosage: THIRD-LINE THERAPY, CYCLIC
     Dates: start: 202004, end: 2020

REACTIONS (1)
  - Haematotoxicity [Unknown]

NARRATIVE: CASE EVENT DATE: 20200101
